FAERS Safety Report 23122363 (Version 1)
Quarter: 2023Q4

REPORT INFORMATION
  Report Type: Report from Study
  Country: US (occurrence: US)
  Receive Date: 20231030
  Receipt Date: 20231030
  Transmission Date: 20240110
  Serious: No
  Sender: FDA-Public Use
  Company Number: US-002147023-NVSC2023US229515

PATIENT
  Sex: Female

DRUGS (1)
  1. KESIMPTA [Suspect]
     Active Substance: OFATUMUMAB
     Indication: Multiple sclerosis
     Dosage: UNK, UNKNOWN
     Route: 065
     Dates: start: 20231005

REACTIONS (5)
  - Influenza like illness [Unknown]
  - Pain [Unknown]
  - Tenderness [Unknown]
  - Fatigue [Unknown]
  - Chills [Unknown]
